FAERS Safety Report 4687910-5 (Version None)
Quarter: 2005Q2

REPORT INFORMATION
  Report Type: 
  Country: None (occurrence: None)
  Receive Date: 20050610
  Receipt Date: 20050531
  Transmission Date: 20051028
  Serious: Yes (Other)
  Sender: FDA-Public Use
  Company Number: CA-GLAXOSMITHKLINE-A0561851A

PATIENT
  Age: 62 Year
  Sex: Female

DRUGS (8)
  1. PAXIL [Suspect]
     Indication: DRUG USE FOR UNKNOWN INDICATION
     Dosage: 30MG PER DAY
     Route: 048
  2. CROMOLYN SODIUM [Concomitant]
     Route: 045
  3. IMOVANE [Concomitant]
  4. INDERAL [Concomitant]
  5. OPTICROM [Concomitant]
  6. POLYSPORIN [Concomitant]
  7. REACTINE [Concomitant]
  8. SYNTHROID [Concomitant]

REACTIONS (9)
  - AGITATION [None]
  - CRYING [None]
  - FATIGUE [None]
  - HALLUCINATION, VISUAL [None]
  - MALAISE [None]
  - NIGHTMARE [None]
  - SLEEP WALKING [None]
  - SUICIDAL IDEATION [None]
  - VERTIGO [None]
